FAERS Safety Report 5448598-9 (Version None)
Quarter: 2007Q3

REPORT INFORMATION
  Report Type: 
  Country: None (occurrence: None)
  Receive Date: 20070905
  Receipt Date: 20070823
  Transmission Date: 20080115
  Serious: Yes (Hospitalization, Other)
  Sender: FDA-Public Use
  Company Number: TPA2007A01579

PATIENT
  Age: 18 Year
  Sex: Female
  Weight: 54.4316 kg

DRUGS (4)
  1. ROZEREM [Suspect]
     Dosage: 8 MG, HS, PER ORAL
     Route: 048
     Dates: start: 20070401, end: 20070701
  2. MULTIVITAMIN [Concomitant]
  3. LORAZEPAM [Concomitant]
  4. CHOLESTYRAMINE (COLESTYRAMINE) [Concomitant]

REACTIONS (2)
  - LIVER FUNCTION TEST ABNORMAL [None]
  - POLYARTERITIS NODOSA [None]
